FAERS Safety Report 19828198 (Version 1)
Quarter: 2021Q3

REPORT INFORMATION
  Report Type: Spontaneous
  Country: DE (occurrence: DE)
  Receive Date: 20210914
  Receipt Date: 20210914
  Transmission Date: 20211014
  Serious: Yes (Hospitalization)
  Sender: FDA-Public Use
  Company Number: DE-TEVA-2021-DE-1951476

PATIENT
  Age: 62 Year
  Sex: Male
  Weight: 70 kg

DRUGS (7)
  1. PREDNISOLON [Suspect]
     Active Substance: PREDNISOLONE
     Dosage: 5 MILLIGRAM DAILY; 1?0?0?0
  2. AMLODIPIN [Concomitant]
     Active Substance: AMLODIPINE BESYLATE
     Dosage: 5 MILLIGRAM DAILY;  0?0?1?0
  3. CANDESARTAN. [Concomitant]
     Active Substance: CANDESARTAN
     Dosage: 32 MILLIGRAM DAILY; 1?0?0?0
  4. PANTOPRAZOL [Concomitant]
     Active Substance: PANTOPRAZOLE SODIUM
     Dosage: 20 MILLIGRAM DAILY;  1?0?0?0
  5. TAMSULOSIN [Concomitant]
     Active Substance: TAMSULOSIN
     Dosage: .4 MILLIGRAM DAILY; 1?0?0?0
  6. DOCETAXEL. [Suspect]
     Active Substance: DOCETAXEL
     Dosage: SCHEME
  7. MIRTAZAPIN [Concomitant]
     Active Substance: MIRTAZAPINE
     Dosage: 45 MILLIGRAM DAILY;  0?0?1?0

REACTIONS (5)
  - Systemic infection [Recovering/Resolving]
  - Diarrhoea [Recovering/Resolving]
  - Pyrexia [Recovering/Resolving]
  - Renal impairment [Recovering/Resolving]
  - Anaemia [Recovering/Resolving]
